FAERS Safety Report 7039065-X (Version None)
Quarter: 2010Q4

REPORT INFORMATION
  Report Type: 
  Country: None (occurrence: None)
  Receive Date: 20101012
  Receipt Date: 20101005
  Transmission Date: 20110411
  Serious: Yes (Life-Threatening, Disabling, Other)
  Sender: FDA-Public Use
  Company Number: US-JNJFOC-20101001719

PATIENT
  Age: 69 Year
  Sex: Female

DRUGS (6)
  1. RISPERIDONE [Suspect]
     Indication: AGITATION
     Route: 048
  2. IMITREX [Suspect]
     Indication: HEADACHE
     Route: 048
  3. LEXAPRO [Suspect]
     Indication: DEPRESSION
     Route: 048
  4. REMERON [Suspect]
     Indication: PRODUCT USED FOR UNKNOWN INDICATION
     Route: 065
  5. TRAZODONE HCL [Suspect]
     Indication: PRODUCT USED FOR UNKNOWN INDICATION
     Route: 065
  6. KEPPRA [Suspect]
     Indication: PRODUCT USED FOR UNKNOWN INDICATION
     Route: 065

REACTIONS (7)
  - ACTIVITIES OF DAILY LIVING IMPAIRED [None]
  - COORDINATION ABNORMAL [None]
  - DRUG ADMINISTRATION ERROR [None]
  - DRUG EFFECT INCREASED [None]
  - DRUG PRESCRIBING ERROR [None]
  - INCOHERENT [None]
  - SERUM SEROTONIN INCREASED [None]
